FAERS Safety Report 9282746 (Version 1)
Quarter: 2013Q2

REPORT INFORMATION
  Report Type: Spontaneous
  Country: US (occurrence: None)
  Receive Date: 20130509
  Receipt Date: 20130509
  Transmission Date: 20140414
  Serious: Yes (Life-Threatening, Hospitalization, Other)
  Sender: FDA-Public Use
  Company Number: None

PATIENT
  Sex: Female
  Weight: 90.72 kg

DRUGS (1)
  1. METOCLOPRAMIDE [Suspect]
     Indication: IMPAIRED GASTRIC EMPTYING
     Dosage: 10 MG TABLET 4 TIMES DAILY

REACTIONS (14)
  - Completed suicide [None]
  - Suicidal ideation [None]
  - Agitation [None]
  - Galactorrhoea [None]
  - Vomiting [None]
  - Depression [None]
  - Nausea [None]
  - Migraine [None]
  - Sweat gland disorder [None]
  - Alopecia [None]
  - Feeling abnormal [None]
  - Eye irritation [None]
  - Ocular hyperaemia [None]
  - Skin burning sensation [None]
